FAERS Safety Report 8179569-X (Version None)
Quarter: 2012Q1

REPORT INFORMATION
  Report Type: 
  Country: None (occurrence: None)
  Receive Date: 20120229
  Receipt Date: 20120222
  Transmission Date: 20120608
  Serious: Yes (Other)
  Sender: FDA-Public Use
  Company Number: 2012SA012420

PATIENT
  Sex: Female

DRUGS (1)
  1. MENTHOL [Suspect]
     Indication: ARTHRALGIA
     Dates: start: 20120201

REACTIONS (5)
  - APPLICATION SITE SWELLING [None]
  - THERMAL BURN [None]
  - APPLICATION SITE VESICLES [None]
  - APPLICATION SITE PAIN [None]
  - APPLICATION SITE INFLAMMATION [None]
